FAERS Safety Report 18077446 (Version 1)
Quarter: 2020Q3

REPORT INFORMATION
  Report Type: Other
  Country: CA (occurrence: CA)
  Receive Date: 20200728
  Receipt Date: 20200728
  Transmission Date: 20201103
  Serious: Yes (Other)
  Sender: FDA-Public Use
  Company Number: CA-ROCHE-2639584

PATIENT
  Sex: Male

DRUGS (10)
  1. ASA [Concomitant]
     Active Substance: ASPIRIN
  2. LATANOPROST. [Concomitant]
     Active Substance: LATANOPROST
  3. BISOPROLOL [Concomitant]
     Active Substance: BISOPROLOL
  4. DILTIAZEM. [Concomitant]
     Active Substance: DILTIAZEM
  5. ESBRIET [Suspect]
     Active Substance: PIRFENIDONE
     Indication: IDIOPATHIC PULMONARY FIBROSIS
     Route: 048
     Dates: start: 20200622, end: 2020
  6. PERINDOPRIL [Concomitant]
     Active Substance: PERINDOPRIL
  7. ATORVASTATIN [Concomitant]
     Active Substance: ATORVASTATIN
  8. ESBRIET [Suspect]
     Active Substance: PIRFENIDONE
     Route: 048
     Dates: start: 2020, end: 2020
  9. INDOMETHACIN. [Concomitant]
     Active Substance: INDOMETHACIN
  10. ESBRIET [Suspect]
     Active Substance: PIRFENIDONE
     Route: 048
     Dates: start: 2020, end: 202007

REACTIONS (3)
  - Urinary retention [Unknown]
  - Constipation [Unknown]
  - Confusional state [Unknown]

NARRATIVE: CASE EVENT DATE: 2020
